FAERS Safety Report 13868416 (Version 1)
Quarter: 2017Q3

REPORT INFORMATION
  Report Type: Spontaneous
  Country: FR (occurrence: FR)
  Receive Date: 20170815
  Receipt Date: 20170815
  Transmission Date: 20171127
  Serious: Yes (Other)
  Sender: FDA-Public Use
  Company Number: FR-ROCHE-1955178

PATIENT
  Age: 58 Year
  Sex: Male
  Weight: 70 kg

DRUGS (9)
  1. PRIMPERAN [Concomitant]
     Active Substance: METOCLOPRAMIDE HYDROCHLORIDE
     Route: 065
  2. LANSOPRAZOLE. [Concomitant]
     Active Substance: LANSOPRAZOLE
     Indication: GASTRITIS
     Route: 048
  3. ERIVEDGE [Suspect]
     Active Substance: VISMODEGIB
     Indication: NEOPLASM MALIGNANT
     Route: 048
     Dates: start: 20170414, end: 20170529
  4. ERIVEDGE [Suspect]
     Active Substance: VISMODEGIB
     Route: 048
     Dates: start: 20170619
  5. TRANXENE T-TAB [Concomitant]
     Active Substance: CLORAZEPATE DIPOTASSIUM
     Indication: ANXIETY
     Dosage: IN THE EVENING
     Route: 048
     Dates: start: 20170404
  6. TOPALGIC LP [Suspect]
     Active Substance: TRAMADOL
     Indication: PRODUCT USED FOR UNKNOWN INDICATION
     Dosage: 1IN THE MORNING AND 1 IN THE EVENING
     Route: 048
     Dates: start: 20170404, end: 20170529
  7. VERSATIS [Concomitant]
     Active Substance: LIDOCAINE
     Route: 023
  8. ATARAX [Concomitant]
     Active Substance: HYDROXYZINE HYDROCHLORIDE
     Dosage: IN THE EVENING
     Route: 065
  9. FERINJECT [Concomitant]
     Active Substance: FERRIC CARBOXYMALTOSE
     Indication: ANAEMIA
     Route: 042
     Dates: start: 201704, end: 20170529

REACTIONS (2)
  - Cholestasis [Recovered/Resolved]
  - Cell death [Recovered/Resolved]

NARRATIVE: CASE EVENT DATE: 20170529
